FAERS Safety Report 26108375 (Version 2)
Quarter: 2025Q4

REPORT INFORMATION
  Report Type: Spontaneous
  Country: US (occurrence: US)
  Receive Date: 20251201
  Receipt Date: 20251203
  Transmission Date: 20260117
  Serious: No
  Sender: BELCHER PHARMACEUTICALS
  Company Number: US-BPI LABS, LLC-2025US004212

PATIENT

DRUGS (1)
  1. SEMAGLUTIDE [Suspect]
     Active Substance: SEMAGLUTIDE
     Indication: Weight decreased
     Dosage: 5 MG/2 ML (2.5 MG/ML)
     Route: 065

REACTIONS (4)
  - Hunger [Unknown]
  - Weight increased [Unknown]
  - Drug ineffective for unapproved indication [Unknown]
  - Off label use [Unknown]
